FAERS Safety Report 16209392 (Version 1)
Quarter: 2019Q2

REPORT INFORMATION
  Report Type: Spontaneous
  Country: JP (occurrence: JP)
  Receive Date: 20190417
  Receipt Date: 20190417
  Transmission Date: 20190711
  Serious: Yes (Other)
  Sender: FDA-Public Use
  Company Number: JP-OTSUKA-2019_011842

PATIENT
  Sex: Female

DRUGS (1)
  1. ABILIFY [Suspect]
     Active Substance: ARIPIPRAZOLE
     Indication: PRODUCT USED FOR UNKNOWN INDICATION
     Dosage: UNK
     Route: 048

REACTIONS (25)
  - Physical deconditioning [Unknown]
  - Muscular weakness [Unknown]
  - Loss of consciousness [Recovered/Resolved]
  - Menstruation irregular [Unknown]
  - Pallor [Unknown]
  - Cardiac disorder [Unknown]
  - Feeling hot [Unknown]
  - Peripheral coldness [Unknown]
  - Cyanosis [Unknown]
  - Lethargy [Unknown]
  - Weight decreased [Unknown]
  - Alopecia [Unknown]
  - Treatment noncompliance [Unknown]
  - Coma [Unknown]
  - Bedridden [Unknown]
  - Ill-defined disorder [Unknown]
  - Hypophagia [Unknown]
  - Throat irritation [Unknown]
  - Dysgeusia [Unknown]
  - Syncope [Unknown]
  - Musculoskeletal stiffness [Unknown]
  - Hair texture abnormal [Unknown]
  - Night sweats [Unknown]
  - Gait inability [Unknown]
  - Suicidal ideation [Unknown]

NARRATIVE: CASE EVENT DATE: 201902
